FAERS Safety Report 4687973-7 (Version None)
Quarter: 2005Q2

REPORT INFORMATION
  Report Type: 
  Country: None (occurrence: None)
  Receive Date: 20050608
  Receipt Date: 20050601
  Transmission Date: 20051028
  Serious: Yes (Life-Threatening)
  Sender: FDA-Public Use
  Company Number: 05H-163-0299788-00

PATIENT
  Age: 46 Year
  Sex: Male

DRUGS (5)
  1. LIDOCAINE HCL [Suspect]
     Indication: ANAESTHESIA
     Dosage: 10 ML INTRA TRACHEAL
     Route: 039
  2. 20% BENZOCAINE (BENZOCAINE) [Suspect]
     Indication: ANAESTHESIA
     Dosage: OROPHARINGEAL
     Route: 049
  3. LIDOCAINE [Suspect]
     Indication: ANAESTHESIA
     Dosage: OROMUCAL USE
     Route: 048
  4. MIDAZOLAM HCL [Concomitant]
  5. FENTANYL [Concomitant]

REACTIONS (3)
  - ANAESTHETIC COMPLICATION [None]
  - METHAEMOGLOBINAEMIA [None]
  - SOMNOLENCE [None]
